FAERS Safety Report 24684801 (Version 2)
Quarter: 2024Q4

REPORT INFORMATION
  Report Type: Report from Study
  Country: US (occurrence: US)
  Receive Date: 20241202
  Receipt Date: 20241230
  Transmission Date: 20250114
  Serious: Yes (Hospitalization, Other)
  Sender: ABBVIE
  Company Number: US-ABBVIE-5998102

PATIENT
  Age: 51 Year
  Sex: Male
  Weight: 80.739 kg

DRUGS (1)
  1. CREON [Suspect]
     Active Substance: PANCRELIPASE AMYLASE\PANCRELIPASE LIPASE\PANCRELIPASE PROTEASE
     Indication: Pancreatitis necrotising
     Dosage: 36,000 1 WITH SNACK AND ANYWHERE FROM 2 TO 3 WITH MEALS
     Route: 048
     Dates: start: 20240410

REACTIONS (3)
  - Stent placement [Unknown]
  - Nausea [Not Recovered/Not Resolved]
  - Abdominal distension [Not Recovered/Not Resolved]

NARRATIVE: CASE EVENT DATE: 20240401
